FAERS Safety Report 16903071 (Version 1)
Quarter: 2019Q4

REPORT INFORMATION
  Report Type: Report from Study
  Country: US (occurrence: US)
  Receive Date: 20191010
  Receipt Date: 20191010
  Transmission Date: 20200122
  Serious: Yes (Hospitalization)
  Sender: FDA-Public Use
  Company Number: US-NOVOPROD-688804

PATIENT
  Age: 54 Year
  Sex: Female
  Weight: 77.11 kg

DRUGS (2)
  1. OZEMPIC [Suspect]
     Active Substance: SEMAGLUTIDE
     Indication: DIABETES MELLITUS
     Dosage: 0.5 MG, QW
     Route: 058
     Dates: start: 2019, end: 2019
  2. OZEMPIC [Suspect]
     Active Substance: SEMAGLUTIDE
     Dosage: DOSE DECREASED
     Route: 058
     Dates: start: 2019

REACTIONS (3)
  - Product use issue [Recovered/Resolved]
  - Malaise [Unknown]
  - Dehydration [Unknown]

NARRATIVE: CASE EVENT DATE: 2019
